FAERS Safety Report 11995629 (Version 2)
Quarter: 2016Q1

REPORT INFORMATION
  Report Type: Report from Study
  Country: ES (occurrence: ES)
  Receive Date: 20160203
  Receipt Date: 20160211
  Transmission Date: 20160526
  Serious: Yes (Hospitalization, Other)
  Sender: FDA-Public Use
  Company Number: ES-ABBVIE-16P-144-1548366-00

PATIENT
  Age: 65 Year
  Sex: Male

DRUGS (11)
  1. QUETIAPINE [Concomitant]
     Active Substance: QUETIAPINE
     Indication: PRODUCT USED FOR UNKNOWN INDICATION
     Route: 048
     Dates: end: 20160127
  2. HIGROTONA [Concomitant]
     Active Substance: CHLORTHALIDONE
     Indication: PRODUCT USED FOR UNKNOWN INDICATION
     Route: 048
     Dates: end: 20160127
  3. QUETIAPINE [Concomitant]
     Active Substance: QUETIAPINE
     Route: 048
     Dates: start: 20160128
  4. DUODOPA [Suspect]
     Active Substance: CARBIDOPA\LEVODOPA
     Dosage: MD: 11ML, CD: 2.7 ML/H, ED: 3.5 ML
     Route: 050
     Dates: start: 20160127, end: 20160127
  5. DUODOPA [Suspect]
     Active Substance: CARBIDOPA\LEVODOPA
     Dosage: MD: 11 ML; CD: 3.4 ML/H; EXTRA DOSE: 3.5
     Route: 050
     Dates: start: 20160128
  6. HIGROTONA [Concomitant]
     Active Substance: CHLORTHALIDONE
     Route: 048
     Dates: start: 20160128
  7. LORAZEPAM. [Concomitant]
     Active Substance: LORAZEPAM
     Indication: PRODUCT USED FOR UNKNOWN INDICATION
     Route: 048
  8. DUODOPA [Suspect]
     Active Substance: CARBIDOPA\LEVODOPA
     Indication: PARKINSON^S DISEASE
     Dosage: TITRATION
     Route: 050
     Dates: start: 20160114, end: 20160127
  9. CYMBALTA [Concomitant]
     Active Substance: DULOXETINE HYDROCHLORIDE
     Indication: PRODUCT USED FOR UNKNOWN INDICATION
     Route: 048
     Dates: end: 20160127
  10. CYMBALTA [Concomitant]
     Active Substance: DULOXETINE HYDROCHLORIDE
     Route: 048
     Dates: start: 20160128
  11. PROPOFOL. [Concomitant]
     Active Substance: PROPOFOL
     Indication: SEDATION
     Dosage: 2-3 MG/KG/H + 2 40 MG BOLUS
     Route: 042
     Dates: start: 20160127, end: 20160127

REACTIONS (6)
  - Bradycardia [Recovered/Resolved]
  - Abdominal pain [Recovered/Resolved]
  - Respiratory tract infection [Recovered/Resolved]
  - Procedural complication [Recovered/Resolved]
  - Oxygen saturation decreased [Recovered/Resolved]
  - Conjunctival haemorrhage [Recovered/Resolved]

NARRATIVE: CASE EVENT DATE: 201601
